FAERS Safety Report 15171564 (Version 1)
Quarter: 2018Q3

REPORT INFORMATION
  Report Type: Other
  Country: ES (occurrence: ES)
  Receive Date: 20180720
  Receipt Date: 20180720
  Transmission Date: 20181010
  Serious: Yes (Other)
  Sender: FDA-Public Use
  Company Number: ES-CELLTRION INC.-2018ES021367

PATIENT

DRUGS (6)
  1. REMSIMA [Suspect]
     Active Substance: INFLIXIMAB
     Indication: CROHN^S DISEASE
     Dosage: 300 MG, 4 WEEK
     Route: 042
     Dates: start: 20170419, end: 20170419
  2. HUMIRA [Suspect]
     Active Substance: ADALIMUMAB
     Indication: INFLAMMATORY BOWEL DISEASE
     Dosage: 160 MG (ONLY THE FIRST HUMIRA DOSE HAD BEEN ADMINISTERED, LOAD DOSE)
     Route: 058
     Dates: start: 20180517, end: 20180517
  3. IMUREL                             /00001501/ [Suspect]
     Active Substance: AZATHIOPRINE SODIUM
     Indication: CROHN^S DISEASE
     Dosage: 1 UNK, DAILY
     Route: 048
     Dates: start: 20100428, end: 201805
  4. HUMIRA [Suspect]
     Active Substance: ADALIMUMAB
     Indication: CROHN^S DISEASE
     Route: 065
  5. REMICADE [Suspect]
     Active Substance: INFLIXIMAB
     Indication: CROHN^S DISEASE
     Dosage: 300 MG, 4 WEEKS
     Route: 042
     Dates: start: 20100611, end: 20170418
  6. REMSIMA [Suspect]
     Active Substance: INFLIXIMAB
     Dosage: 300 MG, 4 WEEK
     Route: 042
     Dates: start: 20180503, end: 20180503

REACTIONS (5)
  - Epstein-Barr virus test positive [Recovering/Resolving]
  - Inappropriate schedule of drug administration [Unknown]
  - Hodgkin^s disease stage III [Recovering/Resolving]
  - Chills [Unknown]
  - Incorrect dose administered [Unknown]

NARRATIVE: CASE EVENT DATE: 201805
